FAERS Safety Report 14900348 (Version 1)
Quarter: 2018Q2

REPORT INFORMATION
  Report Type: Spontaneous
  Country: DE (occurrence: DE)
  Receive Date: 20180516
  Receipt Date: 20180516
  Transmission Date: 20180711
  Serious: Yes (Hospitalization)
  Sender: FDA-Public Use
  Company Number: DE-BAYER-2018-090710

PATIENT
  Age: 73 Year
  Sex: Female

DRUGS (10)
  1. DISTRANEURIN [Concomitant]
     Active Substance: CLOMETHIAZOLE
  2. PANTOPRAZOLE [Concomitant]
     Active Substance: PANTOPRAZOLE
     Dosage: 40 MG, QD
  3. TAVOR (LORAZEPAM) [Concomitant]
     Active Substance: LORAZEPAM
     Dosage: 1 MG, UNK
  4. CLOPIDOGREL [Suspect]
     Active Substance: CLOPIDOGREL BISULFATE
     Dosage: 75 MG, UNK
  5. PREDNISOLON [Concomitant]
     Active Substance: PREDNISOLONE
     Dosage: 50 MG, UNK
  6. ASPIRIN 100 MG [Suspect]
     Active Substance: ASPIRIN
  7. GLYCOPYRRONIUM BROMIDE [Concomitant]
     Active Substance: GLYCOPYRRONIUM
  8. TRAMADOL. [Concomitant]
     Active Substance: TRAMADOL
     Dosage: 200 MG, UNK
  9. METHOCARBAMOL. [Concomitant]
     Active Substance: METHOCARBAMOL
  10. ARLEVERT [Concomitant]
     Active Substance: CINNARIZINE\DIMENHYDRINATE

REACTIONS (4)
  - Haematemesis [Unknown]
  - Chest discomfort [Unknown]
  - Haemorrhagic anaemia [Unknown]
  - Haematochezia [Unknown]
